FAERS Safety Report 22234660 (Version 1)
Quarter: 2023Q2

REPORT INFORMATION
  Report Type: Report from Study
  Country: US (occurrence: US)
  Receive Date: 20230420
  Receipt Date: 20230420
  Transmission Date: 20230722
  Serious: Yes (Other)
  Sender: FDA-Public Use
  Company Number: US-ALNYLAM PHARMACEUTICALS, INC.-ALN-2023-001721

PATIENT

DRUGS (2)
  1. OXLUMO [Suspect]
     Active Substance: LUMASIRAN
     Indication: Primary hyperoxaluria
     Dosage: UNK
     Route: 065
     Dates: start: 20220816
  2. OXLUMO [Suspect]
     Active Substance: LUMASIRAN
     Dosage: UNK
     Route: 065
     Dates: start: 20230214

REACTIONS (4)
  - Renal stone removal [Unknown]
  - Nephrolithiasis [Unknown]
  - Urine oxalate increased [Unknown]
  - Stent removal [Unknown]

NARRATIVE: CASE EVENT DATE: 20230414
